FAERS Safety Report 11858668 (Version 2)
Quarter: 2015Q4

REPORT INFORMATION
  Report Type: Report from Study
  Country: US (occurrence: US)
  Receive Date: 20151222
  Receipt Date: 20151231
  Transmission Date: 20160305
  Serious: Yes (Hospitalization)
  Sender: FDA-Public Use
  Company Number: US-BEH-2015056861

PATIENT
  Age: 84 Year
  Sex: Male
  Weight: 121 kg

DRUGS (35)
  1. PREDNISONE. [Concomitant]
     Active Substance: PREDNISONE
  2. RANITIDINE HYDROCHLORIDE. [Concomitant]
     Active Substance: RANITIDINE HYDROCHLORIDE
  3. DIPHENHYDRAMINE. [Concomitant]
     Active Substance: DIPHENHYDRAMINE
  4. SODIUM CHLORIDE. [Concomitant]
     Active Substance: SODIUM CHLORIDE
  5. ULORIC [Concomitant]
     Active Substance: FEBUXOSTAT
  6. OMEPRAZOLE. [Concomitant]
     Active Substance: OMEPRAZOLE
  7. DOCUSATE CALCIUM. [Concomitant]
     Active Substance: DOCUSATE CALCIUM
  8. AZOR [Concomitant]
     Active Substance: AMLODIPINE BESYLATE\OLMESARTAN MEDOXOMIL
  9. ZEMAIRA [Suspect]
     Active Substance: .ALPHA.1-PROTEINASE INHIBITOR HUMAN
     Dosage: 972 MG/VL
     Route: 042
     Dates: start: 20100611
  10. MULTIVITAMINS [Concomitant]
     Active Substance: VITAMINS
  11. VITAMIN D [Concomitant]
     Active Substance: CHOLECALCIFEROL
  12. SINGULAIR [Concomitant]
     Active Substance: MONTELUKAST SODIUM
  13. LYRICA [Concomitant]
     Active Substance: PREGABALIN
  14. ASPIRIN. [Concomitant]
     Active Substance: ASPIRIN
  15. THEOPHYLLINE [Concomitant]
     Active Substance: THEOPHYLLINE ANHYDROUS
  16. CYANOCOBALAMIN. [Concomitant]
     Active Substance: CYANOCOBALAMIN
  17. FLOMAX [Concomitant]
     Active Substance: TAMSULOSIN HYDROCHLORIDE
  18. FUROSEMIDE. [Concomitant]
     Active Substance: FUROSEMIDE
  19. SPIRONOLACTONE. [Concomitant]
     Active Substance: SPIRONOLACTONE
  20. MELOXICAM. [Concomitant]
     Active Substance: MELOXICAM
  21. FOLIC ACID. [Concomitant]
     Active Substance: FOLIC ACID
  22. OXYGEN. [Concomitant]
     Active Substance: OXYGEN
  23. COUMADIN [Concomitant]
     Active Substance: WARFARIN SODIUM
  24. FISH OIL [Concomitant]
     Active Substance: FISH OIL
  25. MUCINEX [Concomitant]
     Active Substance: GUAIFENESIN
  26. MONTELUKAST [Concomitant]
     Active Substance: MONTELUKAST SODIUM
  27. CARVEDILOL. [Concomitant]
     Active Substance: CARVEDILOL
  28. LISINOPRIL. [Concomitant]
     Active Substance: LISINOPRIL
  29. SOTALOL. [Concomitant]
     Active Substance: SOTALOL
  30. EPIPEN [Concomitant]
     Active Substance: EPINEPHRINE
  31. LYRICA [Concomitant]
     Active Substance: PREGABALIN
  32. ZEMAIRA [Suspect]
     Active Substance: .ALPHA.1-PROTEINASE INHIBITOR HUMAN
     Indication: ALPHA-1 ANTI-TRYPSIN DEFICIENCY
     Route: 042
  33. TRAMADOL. [Concomitant]
     Active Substance: TRAMADOL
  34. PROTONIX [Concomitant]
     Active Substance: PANTOPRAZOLE SODIUM
  35. CELEBREX [Concomitant]
     Active Substance: CELECOXIB

REACTIONS (1)
  - Gastric haemorrhage [Recovered/Resolved]

NARRATIVE: CASE EVENT DATE: 20151126
